FAERS Safety Report 23153558 (Version 1)
Quarter: 2023Q4

REPORT INFORMATION
  Report Type: Spontaneous
  Country: US (occurrence: None)
  Receive Date: 20231106
  Receipt Date: 20231106
  Transmission Date: 20240110
  Serious: Yes (Disabling)
  Sender: FDA-Public Use
  Company Number: None

PATIENT
  Age: 50 Year
  Sex: Male
  Weight: 79.65 kg

DRUGS (2)
  1. TRULICITY [Suspect]
     Active Substance: DULAGLUTIDE
     Indication: Type 2 diabetes mellitus
     Dates: start: 20230301, end: 20230531
  2. Hemp derived THC products [Concomitant]

REACTIONS (4)
  - Decreased appetite [None]
  - Weight decreased [None]
  - Nausea [None]
  - Inability to afford medication [None]

NARRATIVE: CASE EVENT DATE: 20230301
